FAERS Safety Report 10143084 (Version 1)
Quarter: 2014Q2

REPORT INFORMATION
  Report Type: Spontaneous
  Country: US (occurrence: None)
  Receive Date: 20140429
  Receipt Date: 20140429
  Transmission Date: 20141212
  Serious: Yes (Life-Threatening, Hospitalization, Other)
  Sender: FDA-Public Use
  Company Number: None

PATIENT
  Age: 81 Year
  Sex: Male

DRUGS (1)
  1. XARELTO 20 MG [Suspect]
     Indication: DEEP VEIN THROMBOSIS
     Dosage: 1 PILL
     Route: 048

REACTIONS (4)
  - Loss of consciousness [None]
  - Blood pressure decreased [None]
  - Haemoglobin decreased [None]
  - Haemorrhage [None]
